FAERS Safety Report 10871858 (Version 2)
Quarter: 2015Q1

REPORT INFORMATION
  Report Type: Spontaneous
  Country: US (occurrence: US)
  Receive Date: 20150226
  Receipt Date: 20150227
  Transmission Date: 20150721
  Serious: Yes (Hospitalization, Other)
  Sender: FDA-Public Use
  Company Number: US-BAYER-2015-023862

PATIENT
  Age: 16 Year
  Sex: Male

DRUGS (3)
  1. CHLORPHENIRAMINE [Suspect]
     Active Substance: CHLORPHENIRAMINE
  2. METHADONE [Suspect]
     Active Substance: METHADONE HYDROCHLORIDE
  3. ROMILAR [Suspect]
     Active Substance: DEXTROMETHORPHAN HYDROBROMIDE

REACTIONS (11)
  - Serotonin syndrome [Recovered/Resolved]
  - Hyporesponsive to stimuli [Recovered/Resolved]
  - Intentional overdose [None]
  - Hyperthermia [Recovered/Resolved]
  - Myoclonus [Recovered/Resolved]
  - Suicide attempt [None]
  - Rhabdomyolysis [None]
  - Tachycardia [Recovered/Resolved]
  - Hyperhidrosis [Recovered/Resolved]
  - Hypotension [None]
  - Mental status changes [Recovered/Resolved]
